FAERS Safety Report 10639599 (Version 1)
Quarter: 2014Q4

REPORT INFORMATION
  Report Type: Spontaneous
  Country: TR (occurrence: TR)
  Receive Date: 20141209
  Receipt Date: 20141209
  Transmission Date: 20150529
  Serious: Yes (Other)
  Sender: FDA-Public Use
  Company Number: TR-MERCK-1412TUR003888

PATIENT
  Age: 55 Year
  Sex: Male
  Weight: 70 kg

DRUGS (7)
  1. THIOCTACID [Concomitant]
     Active Substance: .ALPHA.-LIPOIC ACID
     Dosage: 600 MG, QD
  2. LIPANTHYL [Concomitant]
     Active Substance: FENOFIBRATE
     Dosage: STRENGTH REPORTED AS 267, FREQUENCY QD (DOSE UNSPECIFIED)
  3. JANUVIA [Suspect]
     Active Substance: SITAGLIPTIN PHOSPHATE
     Indication: TYPE 2 DIABETES MELLITUS
     Dosage: TOTAL DAILY DOSE: 100MG
     Route: 048
     Dates: start: 2011
  4. NEURONTIN [Concomitant]
     Active Substance: GABAPENTIN
     Dosage: 600 MG, QD
  5. CYMBALTA [Concomitant]
     Active Substance: DULOXETINE HYDROCHLORIDE
     Dosage: 60 MG, QD
  6. GAVISCON LIQUID ANTACID [Concomitant]
  7. GLUCOPHAGE [Concomitant]
     Active Substance: METFORMIN HYDROCHLORIDE
     Dosage: STRENGTH REPORTED AS 0.50, FREQUENCY TID (DOSE UNSPECIFIED)

REACTIONS (2)
  - Lipase increased [Not Recovered/Not Resolved]
  - Amylase increased [Not Recovered/Not Resolved]

NARRATIVE: CASE EVENT DATE: 20141204
